FAERS Safety Report 25776077 (Version 1)
Quarter: 2025Q3

REPORT INFORMATION
  Report Type: Spontaneous
  Country: US (occurrence: US)
  Receive Date: 20250909
  Receipt Date: 20250909
  Transmission Date: 20251020
  Serious: Yes (Life-Threatening, Hospitalization)
  Sender: EMCURE PHARMACEUTICALS LTD
  Company Number: US-AVET LIFESCIENCES LTD-2025-AVET-000284

PATIENT
  Age: 33 Year
  Sex: Male

DRUGS (2)
  1. BACLOFEN [Suspect]
     Active Substance: BACLOFEN
     Indication: Product used for unknown indication
     Route: 037
  2. HYDROCORTISONE [Concomitant]
     Active Substance: HYDROCORTISONE
     Indication: Adrenal insufficiency

REACTIONS (1)
  - Cardiac arrest [Recovering/Resolving]
